FAERS Safety Report 9746127 (Version 2)
Quarter: 2013Q4

REPORT INFORMATION
  Report Type: Spontaneous
  Country: GB (occurrence: GB)
  Receive Date: 20131211
  Receipt Date: 20131211
  Transmission Date: 20140711
  Serious: Yes (Other)
  Sender: FDA-Public Use
  Company Number: GB-BMSGILMSD-2009-0025355

PATIENT
  Sex: Male

DRUGS (1)
  1. ATRIPLA [Suspect]
     Indication: HIV INFECTION
     Dates: end: 20091026

REACTIONS (3)
  - Viral load increased [Recovered/Resolved]
  - Neurotoxicity [Recovering/Resolving]
  - Depression [Recovering/Resolving]
